FAERS Safety Report 10111182 (Version 2)
Quarter: 2014Q2

REPORT INFORMATION
  Report Type: Spontaneous
  Country: JP (occurrence: JP)
  Receive Date: 20140425
  Receipt Date: 20140425
  Transmission Date: 20141212
  Serious: Yes (Life-Threatening, Hospitalization)
  Sender: FDA-Public Use
  Company Number: JP-MALLINCKRODT-T201401791

PATIENT
  Age: 80 Year
  Sex: Male
  Weight: 37 kg

DRUGS (6)
  1. OPTIRAY [Suspect]
     Indication: COMPUTERISED TOMOGRAM
     Dosage: 74 ML, SINGLE
     Route: 042
     Dates: start: 20140331, end: 20140331
  2. ETODOLAC [Concomitant]
     Indication: PANCREATIC CARCINOMA
     Dosage: UNK
     Route: 048
  3. RANITIDINE HYDROCHLORIDE [Concomitant]
     Indication: PANCREATIC CARCINOMA
     Dosage: UNK
     Route: 048
  4. OXYCODONE HYDROCHLORIDE [Concomitant]
     Indication: PANCREATIC CARCINOMA
     Dosage: UNK
     Route: 048
  5. DIGESTIVE ENZYME [Concomitant]
     Indication: PANCREATIC CARCINOMA
     Dosage: UNK
     Route: 048
  6. MAGNESIUM OXIDE [Concomitant]
     Indication: PANCREATIC CARCINOMA
     Dosage: UNK
     Route: 048

REACTIONS (1)
  - Anaphylactic shock [Recovered/Resolved]
